FAERS Safety Report 8822318 (Version 1)
Quarter: 2012Q4

REPORT INFORMATION
  Report Type: 
  Country: NZ (occurrence: NZ)
  Receive Date: 20121003
  Receipt Date: 20121003
  Transmission Date: 20130627
  Serious: Yes (Hospitalization, Other)
  Sender: FDA-Public Use
  Company Number: PHHY2012NZ085474

PATIENT
  Age: 41 Year
  Sex: Female

DRUGS (5)
  1. CLOZARIL [Suspect]
     Dosage: 600 mg
     Route: 048
     Dates: start: 20091030
  2. RISPERDAL [Concomitant]
     Dosage: 50 mg, BIW
     Route: 030
     Dates: start: 20100901
  3. OMEPRAZOLE [Concomitant]
     Dosage: 20 mg, Nocte
     Route: 048
     Dates: start: 20110320
  4. DOCUSATE SODIUM [Concomitant]
     Dosage: 50 mg, BID
     Dates: start: 20091204
  5. SENNOSIDES A+B [Concomitant]
     Dosage: 8 mg, UNK
     Route: 048

REACTIONS (1)
  - Mental impairment [Recovering/Resolving]
